FAERS Safety Report 6134012-7 (Version None)
Quarter: 2009Q1

REPORT INFORMATION
  Report Type: 
  Country: None (occurrence: None)
  Receive Date: 20090217
  Receipt Date: 20080307
  Transmission Date: 20090719
  Serious: No
  Sender: FDA-Public Use
  Company Number: AEUSA200800054

PATIENT
  Age: 34 Year
  Sex: Female
  Weight: 63.5036 kg

DRUGS (11)
  1. PROLASTIN [Suspect]
     Indication: ALPHA-1 ANTI-TRYPSIN DEFICIENCY
     Dosage: QW; IV
     Route: 042
     Dates: start: 20070101, end: 20080229
  2. COREG [Concomitant]
  3. CARDIZEM [Concomitant]
  4. CYMBALTA [Concomitant]
  5. XANAX [Concomitant]
  6. FLUTICASONE PROPIONATE [Concomitant]
  7. SINGULAIR [Concomitant]
  8. FLEXERIL [Concomitant]
  9. ATROVENT [Concomitant]
  10. SPIRIVA [Concomitant]
  11. ADVAIR HFA [Concomitant]

REACTIONS (3)
  - PANNICULITIS [None]
  - RASH PRURITIC [None]
  - SKIN LESION [None]
